FAERS Safety Report 4812470-5 (Version None)
Quarter: 2005Q4

REPORT INFORMATION
  Report Type: 
  Country: None (occurrence: None)
  Receive Date: 20051026
  Receipt Date: 20051012
  Transmission Date: 20060501
  Serious: Yes (Hospitalization, Other)
  Sender: FDA-Public Use
  Company Number: US_0411107691

PATIENT
  Age: 26 Year
  Sex: Male
  Weight: 123 kg

DRUGS (7)
  1. ZYPREXA [Suspect]
     Dosage: 20 MG
     Dates: start: 19990331, end: 20010101
  2. LORAZEPAM [Concomitant]
  3. BENZTROPINE MESYLATE [Concomitant]
  4. RISPERIDONE [Concomitant]
  5. LIPITOR [Concomitant]
  6. GEODON [Concomitant]
  7. SEROQUEL [Concomitant]

REACTIONS (13)
  - CHEST PAIN [None]
  - DEHYDRATION [None]
  - DIABETES MELLITUS INADEQUATE CONTROL [None]
  - DIABETIC KETOACIDOSIS [None]
  - HYPERLIPIDAEMIA [None]
  - HYPEROSMOLAR STATE [None]
  - HYPERTENSION [None]
  - HYPONATRAEMIA [None]
  - METABOLIC SYNDROME [None]
  - POLYDIPSIA [None]
  - POLYURIA [None]
  - RENAL FAILURE ACUTE [None]
  - TREATMENT NONCOMPLIANCE [None]
